FAERS Safety Report 6862978-6 (Version None)
Quarter: 2010Q3

REPORT INFORMATION
  Report Type: 
  Country: None (occurrence: None)
  Receive Date: 20100721
  Receipt Date: 20100707
  Transmission Date: 20110219
  Serious: No
  Sender: FDA-Public Use
  Company Number: US-B.I. PHARMACEUTICALS,INC./RIDGEFIELD-2010-BP-07703BP

PATIENT
  Sex: Male

DRUGS (5)
  1. ZANTAC 150 [Suspect]
     Indication: GASTROOESOPHAGEAL REFLUX DISEASE
     Dosage: 300 MG
     Route: 048
     Dates: start: 20100705
  2. FLECAINIDE ACETATE [Concomitant]
     Indication: ATRIAL FIBRILLATION
     Route: 048
  3. FINASTERIDE [Concomitant]
     Indication: PROSTATOMEGALY
     Route: 048
  4. CIALIS [Concomitant]
     Indication: ERECTILE DYSFUNCTION
     Route: 048
  5. UROXATRAL [Concomitant]
     Indication: PROSTATOMEGALY
     Route: 048

REACTIONS (2)
  - DIARRHOEA [None]
  - FAECES DISCOLOURED [None]
